FAERS Safety Report 11390098 (Version 1)
Quarter: 2015Q3

REPORT INFORMATION
  Report Type: Report from Study
  Country: IE (occurrence: IE)
  Receive Date: 20150818
  Receipt Date: 20150818
  Transmission Date: 20151125
  Serious: Yes (Hospitalization)
  Sender: FDA-Public Use
  Company Number: IE-AMGEN-IRLSL2015082291

PATIENT
  Age: 84 Year
  Sex: Female

DRUGS (8)
  1. ONE ALPHA [Concomitant]
     Active Substance: ALFACALCIDOL
  2. CENTYL K [Concomitant]
  3. ARANESP [Suspect]
     Active Substance: DARBEPOETIN ALFA
     Indication: PRODUCT USED FOR UNKNOWN INDICATION
     Dosage: 40 MUG, QWK
     Route: 058
     Dates: start: 201506
  4. STELARA [Concomitant]
     Active Substance: USTEKINUMAB
     Dosage: 90 MG, UNK
  5. PANTOPRAZOLE [Concomitant]
     Active Substance: PANTOPRAZOLE SODIUM
  6. VALSARTAN. [Concomitant]
     Active Substance: VALSARTAN
  7. ASPIRIN                            /00002701/ [Concomitant]
     Active Substance: ASPIRIN
  8. DELTACORTRIL [Concomitant]
     Active Substance: PREDNISOLONE
     Dosage: 10 MG, QD

REACTIONS (2)
  - Hospitalisation [Recovered/Resolved]
  - Inappropriate schedule of drug administration [Unknown]
